FAERS Safety Report 6633737-4 (Version None)
Quarter: 2010Q1

REPORT INFORMATION
  Report Type: 
  Country: None (occurrence: None)
  Receive Date: 20100315
  Receipt Date: 20100308
  Transmission Date: 20100710
  Serious: Yes (Hospitalization)
  Sender: FDA-Public Use
  Company Number: US-BIOGENIDEC-2010BI001884

PATIENT
  Age: 67 Year
  Sex: Male

DRUGS (2)
  1. AVONEX [Suspect]
     Indication: MULTIPLE SCLEROSIS
     Route: 030
     Dates: start: 20091001
  2. AVONEX [Suspect]
     Route: 030
     Dates: start: 20031125

REACTIONS (3)
  - KNEE ARTHROPLASTY [None]
  - MENISCUS LESION [None]
  - POST PROCEDURAL INFECTION [None]
